FAERS Safety Report 7280804-0 (Version None)
Quarter: 2011Q1

REPORT INFORMATION
  Report Type: 
  Country: None (occurrence: None)
  Receive Date: 20110208
  Receipt Date: 20110128
  Transmission Date: 20110831
  Serious: Yes (Death, Hospitalization)
  Sender: FDA-Public Use
  Company Number: JP-JNJFOC-20110201631

PATIENT
  Sex: Female
  Weight: 69 kg

DRUGS (5)
  1. DOXORUBICIN HCL [Suspect]
     Indication: OVARIAN CANCER RECURRENT
     Dosage: CYCLE 2
     Route: 042
  2. DECADRON [Concomitant]
     Indication: PROPHYLAXIS
     Route: 042
  3. DOXORUBICIN HCL [Suspect]
     Dosage: CYCLE 1
     Route: 042
  4. KYTRIL [Concomitant]
     Indication: PROPHYLAXIS
     Route: 042
  5. PYDOXAL [Concomitant]
     Route: 048

REACTIONS (3)
  - DISSEMINATED INTRAVASCULAR COAGULATION [None]
  - URINARY TRACT INFECTION [None]
  - OVARIAN CANCER [None]
